FAERS Safety Report 5530316-7 (Version None)
Quarter: 2007Q4

REPORT INFORMATION
  Report Type: 
  Country: None (occurrence: None)
  Receive Date: 20071130
  Receipt Date: 20070411
  Transmission Date: 20080405
  Serious: No
  Sender: FDA-Public Use
  Company Number: A0647243A

PATIENT
  Age: 61 Year
  Sex: Female

DRUGS (1)
  1. AUGMENTIN '250' [Suspect]
     Indication: ANIMAL BITE
     Dates: start: 20070301

REACTIONS (2)
  - ABDOMINAL PAIN UPPER [None]
  - DIARRHOEA [None]
